FAERS Safety Report 17816484 (Version 1)
Quarter: 2020Q2

REPORT INFORMATION
  Report Type: Spontaneous
  Country: US (occurrence: US)
  Receive Date: 20200522
  Receipt Date: 20200522
  Transmission Date: 20200714
  Serious: No
  Sender: FDA-Public Use
  Company Number: US-PFIZER INC-2020202736

PATIENT
  Age: 66 Year
  Sex: Female
  Weight: 108.41 kg

DRUGS (2)
  1. LYRICA [Suspect]
     Active Substance: PREGABALIN
     Indication: MYALGIA
     Dosage: 150 MG, 1X/DAY (ONCE A DAY)
     Route: 048
  2. LYRICA [Suspect]
     Active Substance: PREGABALIN
     Indication: FIBROMYALGIA
     Dosage: 150 MG, 2X/DAY (150MG CAPSULES; TAKE ONE CAPSULE BY MOUTH TWICE A DAY)
     Route: 048

REACTIONS (2)
  - Memory impairment [Unknown]
  - Intentional product use issue [Unknown]
